FAERS Safety Report 6849556-X (Version None)
Quarter: 2010Q3

REPORT INFORMATION
  Report Type: 
  Country: None (occurrence: None)
  Receive Date: 20100716
  Receipt Date: 20071001
  Transmission Date: 20110219
  Serious: No
  Sender: FDA-Public Use
  Company Number: US-PFIZER INC-2007082822

PATIENT
  Sex: Female
  Weight: 55.9 kg

DRUGS (5)
  1. CHANTIX [Suspect]
     Indication: SMOKING CESSATION THERAPY
     Dates: start: 20070919, end: 20070928
  2. MOBIC [Concomitant]
  3. EFFEXOR [Concomitant]
  4. CAPTOPRIL [Concomitant]
  5. THYROID TAB [Concomitant]
     Indication: HYPOTHYROIDISM

REACTIONS (6)
  - FEELING ABNORMAL [None]
  - IRRITABILITY [None]
  - NERVOUSNESS [None]
  - NIGHTMARE [None]
  - TREMOR [None]
  - VOMITING [None]
